FAERS Safety Report 5410338-7 (Version None)
Quarter: 2007Q3

REPORT INFORMATION
  Report Type: 
  Country: None (occurrence: None)
  Receive Date: 20070808
  Receipt Date: 20070723
  Transmission Date: 20080115
  Serious: Yes (Life-Threatening, Hospitalization)
  Sender: FDA-Public Use
  Company Number: DSA_30320_2007

PATIENT
  Age: 62 Year
  Sex: Male

DRUGS (7)
  1. LORAZEPAM [Suspect]
     Indication: ANXIETY
     Dosage: 1.5 MG, 1 MG BID, 6 MG
  2. LORAZEPAM [Suspect]
     Indication: DEPRESSION
     Dosage: 1.5 MG, 1 MG BID, 6 MG
  3. FLUOXETINE [Suspect]
     Indication: DEPRESSION
     Dosage: 20 MG QD
  4. ALPRAZOLAM [Suspect]
     Indication: PANIC REACTION
     Dosage: DF
  5. TEMAZEPAM [Suspect]
     Indication: DRUG USE FOR UNKNOWN INDICATION
     Dosage: DF
  6. DIAZEPAM [Suspect]
     Dosage: 7 MG, 10 MG
  7. EYEDROPS [Concomitant]

REACTIONS (13)
  - AGITATION [None]
  - ANXIETY [None]
  - DRUG DEPENDENCE [None]
  - DRUG WITHDRAWAL SYNDROME [None]
  - FEAR [None]
  - FEELING ABNORMAL [None]
  - IMPULSIVE BEHAVIOUR [None]
  - INJURY [None]
  - INSOMNIA [None]
  - INTENTIONAL SELF-INJURY [None]
  - MENTAL DISORDER [None]
  - PANIC ATTACK [None]
  - TREATMENT NONCOMPLIANCE [None]
